FAERS Safety Report 6018583-7 (Version None)
Quarter: 2008Q4

REPORT INFORMATION
  Report Type: 
  Country: None (occurrence: None)
  Receive Date: 20081223
  Receipt Date: 20081204
  Transmission Date: 20090506
  Serious: No
  Sender: FDA-Public Use
  Company Number: US-B.I. PHARMACEUTICALS,INC./RIDGEFIELD-2008-BP-18536BP

PATIENT
  Age: 45 Year

DRUGS (2)
  1. MIRAPEX [Suspect]
     Indication: RESTLESS LEGS SYNDROME
     Dosage: .125MG
     Dates: start: 20080701
  2. MIRAPEX [Suspect]
     Dosage: .75MG
     Dates: start: 20080901

REACTIONS (3)
  - CONDITION AGGRAVATED [None]
  - DRUG ADMINISTRATION ERROR [None]
  - DRUG INEFFECTIVE [None]
